FAERS Safety Report 6468091-4 (Version None)
Quarter: 2009Q4

REPORT INFORMATION
  Report Type: 
  Country: None (occurrence: None)
  Receive Date: 20091127
  Receipt Date: 20091119
  Transmission Date: 20100525
  Serious: Yes (Other)
  Sender: FDA-Public Use
  Company Number: 2009AL007364

PATIENT
  Age: 64 Year
  Sex: Male

DRUGS (8)
  1. DICLOFENAC SODIUM [Suspect]
     Indication: ARTHRALGIA
  2. ATENOLOL [Concomitant]
  3. DOXAZOSIN [Concomitant]
  4. LISINOPRIL [Concomitant]
  5. BENDROFLUAZIDE [Concomitant]
  6. CO-CODAMOL [Concomitant]
  7. MORPHINE SULFATE [Concomitant]
  8. GABAPENTIN [Concomitant]

REACTIONS (9)
  - ASCITES [None]
  - CARDIAC FAILURE [None]
  - CONSTIPATION [None]
  - DYSPNOEA EXERTIONAL [None]
  - LYMPHOEDEMA [None]
  - ORTHOPNOEA [None]
  - PLEURAL EFFUSION [None]
  - TRICUSPID VALVE INCOMPETENCE [None]
  - VENTRICULAR HYPERTROPHY [None]
